FAERS Safety Report 9024208 (Version 2)
Quarter: 2014Q2

REPORT INFORMATION
  Report Type: Spontaneous
  Country: US (occurrence: US)
  Receive Date: 20130122
  Receipt Date: 20140415
  Transmission Date: 20141212
  Serious: No
  Sender: FDA-Public Use
  Company Number: US-BIOGENIDEC-2013BI004903

PATIENT
  Age: 53 Year
  Sex: Male

DRUGS (3)
  1. AVONEX [Suspect]
     Indication: RELAPSING-REMITTING MULTIPLE SCLEROSIS
     Route: 030
  2. AVONEX [Suspect]
     Indication: RELAPSING-REMITTING MULTIPLE SCLEROSIS
     Route: 030
     Dates: start: 20091001
  3. AVONEX [Suspect]
     Indication: RELAPSING-REMITTING MULTIPLE SCLEROSIS
     Route: 030
     Dates: start: 20091018

REACTIONS (7)
  - Joint swelling [Not Recovered/Not Resolved]
  - Skin warm [Unknown]
  - Peripheral swelling [Unknown]
  - Arthritis infective [Unknown]
  - Yawning [Unknown]
  - Injection site erythema [Recovered/Resolved]
  - Influenza like illness [Unknown]
